FAERS Safety Report 9894426 (Version 1)
Quarter: 2014Q1

REPORT INFORMATION
  Report Type: Spontaneous
  Country: AU (occurrence: AU)
  Receive Date: 20140213
  Receipt Date: 20140213
  Transmission Date: 20141002
  Serious: Yes (Other)
  Sender: FDA-Public Use
  Company Number: PHHY2014AU014212

PATIENT
  Age: 50 Year
  Sex: Male

DRUGS (1)
  1. VALPROATE SODIUM SANDOZ [Suspect]
     Route: 048

REACTIONS (3)
  - Convulsion [Unknown]
  - Loss of consciousness [Unknown]
  - Drug ineffective [Unknown]
